FAERS Safety Report 17094949 (Version 1)
Quarter: 2019Q4

REPORT INFORMATION
  Report Type: Spontaneous
  Country: TN (occurrence: TN)
  Receive Date: 20191130
  Receipt Date: 20191130
  Transmission Date: 20200122
  Serious: Yes (Other)
  Sender: FDA-Public Use
  Company Number: TN-UCBSA-2019049345

PATIENT
  Age: 44 Year
  Sex: Female
  Weight: 59 kg

DRUGS (1)
  1. CIMZIA [Suspect]
     Active Substance: CERTOLIZUMAB PEGOL
     Indication: RHEUMATOID ARTHRITIS
     Dosage: 400 MILLIGRAM, MONTHLY (QM)
     Route: 058
     Dates: start: 20181011

REACTIONS (1)
  - Brain abscess [Unknown]

NARRATIVE: CASE EVENT DATE: 20191104
